FAERS Safety Report 5632669-8 (Version None)
Quarter: 2008Q1

REPORT INFORMATION
  Report Type: 
  Country: None (occurrence: None)
  Receive Date: 20080219
  Receipt Date: 20080205
  Transmission Date: 20080703
  Serious: Yes (Hospitalization)
  Sender: FDA-Public Use
  Company Number: 2008BI000781

PATIENT
  Age: 64 Year
  Sex: Male

DRUGS (16)
  1. AVONEX [Suspect]
     Indication: MULTIPLE SCLEROSIS
     Dosage: 30 UG;QW;IM
     Route: 030
  2. BACLOFEN [Concomitant]
  3. FINASTERIDE [Concomitant]
  4. MIRAPEX [Concomitant]
  5. COUMADIN [Concomitant]
  6. GLYCOLAX [Concomitant]
  7. FOSAMAX [Concomitant]
  8. ZOLOFT [Concomitant]
  9. MACRODANTIN [Concomitant]
  10. BACTRIM [Concomitant]
  11. ALBUTEROL [Concomitant]
  12. ATROVENT [Concomitant]
  13. CRANBERRY [Concomitant]
  14. OXYGEN [Concomitant]
  15. FLUNISOLIDE [Concomitant]
  16. MUCINEX [Concomitant]

REACTIONS (9)
  - CELLULITIS [None]
  - CONSTIPATION [None]
  - DEHYDRATION [None]
  - HEMIPARESIS [None]
  - HYPOTENSION [None]
  - MULTIPLE SCLEROSIS [None]
  - PRODUCTIVE COUGH [None]
  - PSEUDOMONAS INFECTION [None]
  - URINARY TRACT INFECTION [None]
